FAERS Safety Report 8207655-4 (Version None)
Quarter: 2012Q1

REPORT INFORMATION
  Report Type: 
  Country: None (occurrence: None)
  Receive Date: 20120314
  Receipt Date: 20120314
  Transmission Date: 20120608
  Serious: Yes (Life-Threatening, Hospitalization)
  Sender: FDA-Public Use
  Company Number: None

PATIENT
  Age: 83 Year
  Sex: Male
  Weight: 56.699 kg

DRUGS (1)
  1. LOVASTATIN [Suspect]
     Indication: DYSLIPIDAEMIA
     Dosage: 10MG
     Route: 048
     Dates: start: 20120104, end: 20120311

REACTIONS (6)
  - RENAL FAILURE ACUTE [None]
  - METABOLIC ACIDOSIS [None]
  - PNEUMONIA [None]
  - CONFUSIONAL STATE [None]
  - UNRESPONSIVE TO STIMULI [None]
  - RHABDOMYOLYSIS [None]
